FAERS Safety Report 7578526-1 (Version None)
Quarter: 2011Q2

REPORT INFORMATION
  Report Type: 
  Country: None (occurrence: None)
  Receive Date: 20110622
  Receipt Date: 20110617
  Transmission Date: 20111010
  Serious: Yes (Death, Disabling)
  Sender: FDA-Public Use
  Company Number: 2011SP019476

PATIENT
  Age: 55 Year
  Sex: Male
  Weight: 58.96 kg

DRUGS (31)
  1. TYLENOL-500 [Concomitant]
  2. XANAX [Concomitant]
  3. ATROPINE SULFATE [Concomitant]
  4. COMBIVENT [Concomitant]
  5. CORDARONE [Concomitant]
  6. CATAPRES-TTS-2 [Concomitant]
  7. DORIBAX [Concomitant]
  8. DIFLUCAN [Concomitant]
  9. HEPARIN SODIUM [Concomitant]
  10. HUMULIN R/NOVOLIN R [Concomitant]
  11. PROTONIX [Concomitant]
  12. SODIUM CHLORIDE [Concomitant]
  13. DEXTROSE 50% IN WATER [Concomitant]
  14. ULTRAM [Concomitant]
  15. NORVASC [Concomitant]
  16. NITROGLYCERIN [Concomitant]
  17. THEOPHYLLINE [Concomitant]
  18. FENTANYL/NS [Concomitant]
  19. ALDACTONE [Concomitant]
  20. GLUCOSE [Concomitant]
  21. TUSSIONEX [Concomitant]
  22. HEPARIN LOCK-FLUSH [Concomitant]
  23. SOLU-MEDROL [Concomitant]
  24. REGLAN [Concomitant]
  25. GLUCAGON [Concomitant]
  26. PRILOSEC [Concomitant]
  27. INTRON A [Suspect]
     Indication: HEPATITIS C
     Dates: start: 20110110, end: 20110314
  28. REBETOL [Suspect]
     Indication: HEPATITIS C
     Dosage: 1000 MG; QD; PO
     Route: 048
     Dates: start: 20110110, end: 20110404
  29. LANTUS [Concomitant]
  30. VERSED [Concomitant]
  31. ALBUTEROL SULFATE AUTOHALER [Concomitant]

REACTIONS (9)
  - RESPIRATORY DISTRESS [None]
  - CONSTIPATION [None]
  - BLOOD GLUCOSE INCREASED [None]
  - DEHYDRATION [None]
  - PULMONARY OEDEMA [None]
  - BALANCE DISORDER [None]
  - VOMITING [None]
  - PNEUMONIA [None]
  - NAUSEA [None]
